FAERS Safety Report 5140109-0 (Version None)
Quarter: 2006Q4

REPORT INFORMATION
  Report Type: 
  Country: None (occurrence: None)
  Receive Date: 20061025
  Receipt Date: 20061019
  Transmission Date: 20070319
  Serious: Yes (Hospitalization)
  Sender: FDA-Public Use
  Company Number: RB-4198-2006

PATIENT
  Age: 30 Year
  Sex: Male
  Weight: 68.0396 kg

DRUGS (1)
  1. SUBOXONE [Suspect]
     Indication: DRUG DEPENDENCE
     Dosage: SEE IMAGE, SUBLINGUAL
     Route: 060
     Dates: start: 20061006, end: 20061007

REACTIONS (4)
  - ABDOMINAL PAIN UPPER [None]
  - ANXIETY [None]
  - CONFUSIONAL STATE [None]
  - CONSTIPATION [None]
